FAERS Safety Report 16978135 (Version 1)
Quarter: 2019Q4

REPORT INFORMATION
  Report Type: Spontaneous
  Country: ZA (occurrence: ZA)
  Receive Date: 20191031
  Receipt Date: 20191031
  Transmission Date: 20200122
  Serious: Yes (Death, Other)
  Sender: FDA-Public Use
  Company Number: ZA-HETERO-HET2019ZA01514

PATIENT
  Sex: Female

DRUGS (1)
  1. NEVIRAPINE. [Suspect]
     Active Substance: NEVIRAPINE
     Indication: HIV INFECTION
     Route: 065

REACTIONS (5)
  - Toxic epidermal necrolysis [Fatal]
  - Premature labour [Unknown]
  - Stillbirth [Unknown]
  - Death [Fatal]
  - Maternal exposure during pregnancy [Unknown]
